FAERS Safety Report 20986122 (Version 1)
Quarter: 2022Q2

REPORT INFORMATION
  Report Type: Spontaneous
  Country: SI (occurrence: SI)
  Receive Date: 20220621
  Receipt Date: 20220621
  Transmission Date: 20220721
  Serious: Yes (Hospitalization, Other)
  Sender: FDA-Public Use
  Company Number: SI-BRISTOL-MYERS SQUIBB COMPANY-2022-057615

PATIENT
  Age: 36 Year
  Sex: Male

DRUGS (1)
  1. APIXABAN [Suspect]
     Active Substance: APIXABAN
     Indication: Cerebral venous sinus thrombosis
     Route: 065
     Dates: start: 201910, end: 202010

REACTIONS (3)
  - Off label use [Unknown]
  - Jugular vein thrombosis [Recovering/Resolving]
  - Sigmoid sinus thrombosis [Recovered/Resolved]

NARRATIVE: CASE EVENT DATE: 20201101
